FAERS Safety Report 5578421-3 (Version None)
Quarter: 2007Q4

REPORT INFORMATION
  Report Type: 
  Country: None (occurrence: None)
  Receive Date: 20071231
  Receipt Date: 20071220
  Transmission Date: 20080405
  Serious: Yes (Hospitalization, Other)
  Sender: FDA-Public Use
  Company Number: IN-PFIZER INC-2007107508

PATIENT
  Age: 56 Year
  Sex: Male

DRUGS (6)
  1. SERTRALINE [Suspect]
     Indication: DEPRESSION
     Dosage: DAILY DOSE:100MG
  2. TRAZODONE HCL [Interacting]
     Indication: DEPRESSION
     Dosage: DAILY DOSE:100MG
  3. LITHIUM CARBONATE [Interacting]
     Indication: BIPOLAR DISORDER
     Dosage: DAILY DOSE:750MG
  4. PHENYTOIN [Interacting]
     Indication: CONVULSION
     Dosage: DAILY DOSE:300MG
  5. ESCITALOPRAM [Interacting]
     Indication: DEPRESSION
     Dosage: DAILY DOSE:10MG
  6. AMLODIPINE [Concomitant]
     Indication: ESSENTIAL HYPERTENSION
     Dosage: DAILY DOSE:10MG

REACTIONS (4)
  - DRUG INEFFECTIVE [None]
  - DRUG INTERACTION [None]
  - HYPOMANIA [None]
  - SEROTONIN SYNDROME [None]
